FAERS Safety Report 19929216 (Version 1)
Quarter: 2021Q4

REPORT INFORMATION
  Report Type: Spontaneous
  Country: US (occurrence: US)
  Receive Date: 20211007
  Receipt Date: 20211007
  Transmission Date: 20220303
  Serious: No
  Sender: FDA-Public Use
  Company Number: US-TAKEDA-2021TUS060660

PATIENT
  Age: 14 Year
  Sex: Male
  Weight: 56.69 kg

DRUGS (1)
  1. GAMMAGARD LIQUID [Suspect]
     Active Substance: HUMAN IMMUNOGLOBULIN G
     Indication: Product used for unknown indication
     Dosage: 60 GRAM
     Route: 058
     Dates: start: 20210920

REACTIONS (3)
  - Infusion site erythema [Unknown]
  - Infusion site pain [Unknown]
  - Injection related reaction [Unknown]

NARRATIVE: CASE EVENT DATE: 20210927
